FAERS Safety Report 25013395 (Version 1)
Quarter: 2025Q1

REPORT INFORMATION
  Report Type: Report from Study
  Country: US (occurrence: US)
  Receive Date: 20250226
  Receipt Date: 20250226
  Transmission Date: 20250409
  Serious: No
  Sender: DR REDDYS
  Company Number: US-DRL-USA-USA/2025/02/002474

PATIENT
  Sex: Female
  Weight: 10.61 kg

DRUGS (1)
  1. JAVYGTOR [Suspect]
     Active Substance: SAPROPTERIN DIHYDROCHLORIDE
     Indication: Hyperphenylalaninaemia
     Dosage: DISSOLVE 3 PACKETS IN 15 ML OF WATER OR APPLE JUICE AND TAKE 11 ML (220 MG) DAILY. ADJUST RECIPE AND
     Route: 048

REACTIONS (1)
  - Product deposit [Unknown]
